FAERS Safety Report 23230935 (Version 1)
Quarter: 2023Q4

REPORT INFORMATION
  Report Type: Spontaneous
  Country: US (occurrence: US)
  Receive Date: 20231127
  Receipt Date: 20231127
  Transmission Date: 20240109
  Serious: No
  Sender: FDA-Public Use
  Company Number: US-JNJFOC-20231111711

PATIENT
  Age: 62 Year
  Sex: Female

DRUGS (10)
  1. TYLENOL [Suspect]
     Active Substance: ACETAMINOPHEN
     Indication: Premedication
     Route: 065
     Dates: start: 202310
  2. TYLENOL [Suspect]
     Active Substance: ACETAMINOPHEN
     Indication: Headache
     Route: 065
     Dates: start: 2023
  3. TYVASO [Concomitant]
     Active Substance: TREPROSTINIL
     Indication: Pulmonary arterial hypertension
     Route: 055
     Dates: start: 202208
  4. TYVASO [Concomitant]
     Active Substance: TREPROSTINIL
     Route: 055
     Dates: start: 202310
  5. TYVASO [Concomitant]
     Active Substance: TREPROSTINIL
     Route: 055
     Dates: start: 202310, end: 202310
  6. TYVASO [Concomitant]
     Active Substance: TREPROSTINIL
     Route: 055
     Dates: start: 202310
  7. AMBRISENTAN [Concomitant]
     Active Substance: AMBRISENTAN
     Indication: Product used for unknown indication
     Route: 065
  8. DIGOXIN [Concomitant]
     Active Substance: DIGOXIN
     Indication: Atrial flutter
     Route: 065
     Dates: start: 2023
  9. DILTIAZEM [Concomitant]
     Active Substance: DILTIAZEM
     Indication: Atrial flutter
     Route: 065
  10. OXYGENE LIQUID AIR LIQUID MEDICAL [Concomitant]
     Indication: Product used for unknown indication
     Dosage: INCREASED FROM 6 LITRES TO 8 LITRES
     Route: 065

REACTIONS (1)
  - Off label use [Unknown]

NARRATIVE: CASE EVENT DATE: 20231001
